FAERS Safety Report 5787823-1 (Version None)
Quarter: 2008Q2

REPORT INFORMATION
  Report Type: 
  Country: None (occurrence: None)
  Receive Date: 20080625
  Receipt Date: 20080625
  Transmission Date: 20081010
  Serious: Yes (Death, Hospitalization)
  Sender: FDA-Public Use
  Company Number: PHHO2000TR07916

PATIENT
  Sex: Female
  Weight: 56 kg

DRUGS (5)
  1. DIOVAN T30230+CAPS+HY [Suspect]
     Indication: ESSENTIAL HYPERTENSION
     Dosage: RUN-IN PHASE
     Dates: start: 20000714
  2. DIOVAN T30230+CAPS+HY [Suspect]
     Dosage: 160MG (DOUBLE-BLIND)
  3. DIGOXIN [Concomitant]
     Indication: CARDIAC FAILURE
  4. LASIX [Concomitant]
     Indication: CARDIAC FAILURE
  5. CORASPIN [Concomitant]
     Indication: PROPHYLAXIS

REACTIONS (3)
  - CEREBRAL HAEMORRHAGE [None]
  - CONDITION AGGRAVATED [None]
  - LOSS OF CONSCIOUSNESS [None]
